FAERS Safety Report 9479659 (Version 1)
Quarter: 2013Q3

REPORT INFORMATION
  Report Type: Report from Study
  Country: AR (occurrence: AR)
  Receive Date: 20130827
  Receipt Date: 20130827
  Transmission Date: 20140515
  Serious: Yes (Other)
  Sender: FDA-Public Use
  Company Number: PHHY2013AR092813

PATIENT
  Sex: Female

DRUGS (1)
  1. EXFORGE [Suspect]
     Indication: HYPERTENSION
     Dosage: 1 TABLET (160/5 MG), DAILY
     Route: 048

REACTIONS (4)
  - Oculofacial paralysis [Unknown]
  - Diabetes mellitus [Unknown]
  - Lung disorder [Unknown]
  - Blood pressure increased [Unknown]
